FAERS Safety Report 4479401-1 (Version None)
Quarter: 2004Q4

REPORT INFORMATION
  Report Type: 
  Country: None (occurrence: None)
  Receive Date: 20041015
  Receipt Date: 20041001
  Transmission Date: 20050328
  Serious: Yes (Disabling)
  Sender: FDA-Public Use
  Company Number: 2004237056GB

PATIENT
  Age: 44 Year
  Sex: Female

DRUGS (1)
  1. SULFASALAZINE [Suspect]
     Indication: ARTHRALGIA
     Dosage: 500 MG, QD, ORAL
     Route: 048
     Dates: start: 20040216, end: 20040220

REACTIONS (4)
  - EYE INFECTION [None]
  - NASAL CONGESTION [None]
  - ORAL CANDIDIASIS [None]
  - PHARYNGITIS [None]
